FAERS Safety Report 26156946 (Version 1)
Quarter: 2025Q4

REPORT INFORMATION
  Report Type: Spontaneous
  Country: GB (occurrence: GB)
  Receive Date: 20251215
  Receipt Date: 20251215
  Transmission Date: 20260118
  Serious: Yes (Hospitalization, Other)
  Sender: DR REDDYS
  Company Number: None

PATIENT
  Age: 74 Year
  Sex: Female
  Weight: 55 kg

DRUGS (1)
  1. FAMOTIDINE [Suspect]
     Active Substance: FAMOTIDINE
     Indication: Hiatus hernia
     Dosage: 20MG DAILY

REACTIONS (6)
  - Migraine with aura [Recovering/Resolving]
  - Headache [Recovering/Resolving]
  - Confusional state [Unknown]
  - Disorientation [Unknown]
  - Photophobia [Unknown]
  - Asthenopia [Unknown]
